FAERS Safety Report 13228442 (Version 1)
Quarter: 2017Q1

REPORT INFORMATION
  Report Type: Spontaneous
  Country: US (occurrence: US)
  Receive Date: 20170213
  Receipt Date: 20170213
  Transmission Date: 20170428
  Serious: No
  Sender: FDA-Public Use
  Company Number: US-ROCHE-1873655

PATIENT
  Sex: Female

DRUGS (2)
  1. ALECENSA [Suspect]
     Active Substance: ALECTINIB HYDROCHLORIDE
     Indication: LUNG NEOPLASM MALIGNANT
     Dosage: FULL DOSE
     Route: 065
     Dates: start: 201604
  2. ALECENSA [Suspect]
     Active Substance: ALECTINIB HYDROCHLORIDE
     Dosage: REDUCED DOSE
     Route: 065

REACTIONS (4)
  - Diarrhoea [Unknown]
  - Hyperglycaemia [Unknown]
  - Fatigue [Unknown]
  - Polyuria [Unknown]
